FAERS Safety Report 4609096-5 (Version None)
Quarter: 2005Q1

REPORT INFORMATION
  Report Type: 
  Country: None (occurrence: None)
  Receive Date: 20050311
  Receipt Date: 20050225
  Transmission Date: 20050727
  Serious: Yes (Death)
  Sender: FDA-Public Use
  Company Number: US014613

PATIENT
  Age: 50 Year
  Sex: Male

DRUGS (3)
  1. ACTIQ [Suspect]
     Indication: GLOSSOPHARYNGEAL NEURALGIA
     Dosage: 1800 UG ONCE BUCCAL
     Route: 002
     Dates: start: 20041201, end: 20041201
  2. NEURONTIN [Concomitant]
  3. AVIANZA [Concomitant]

REACTIONS (2)
  - COMPLETED SUICIDE [None]
  - MULTIPLE DRUG OVERDOSE [None]
